FAERS Safety Report 10204108 (Version 28)
Quarter: 2015Q3

REPORT INFORMATION
  Report Type: Report from Study
  Country: TR (occurrence: TR)
  Receive Date: 20140529
  Receipt Date: 20150821
  Transmission Date: 20151125
  Serious: Yes (Hospitalization, Other)
  Sender: FDA-Public Use
  Company Number: TR-ROCHE-1407012

PATIENT
  Age: 50 Year
  Sex: Male
  Weight: 74 kg

DRUGS (129)
  1. OBINUTUZUMAB [Suspect]
     Active Substance: OBINUTUZUMAB
     Dosage: C1D8
     Route: 042
     Dates: start: 20140219, end: 20140219
  2. FLUDARABINE [Suspect]
     Active Substance: FLUDARABINE PHOSPHATE
     Dosage: C4D2
     Route: 042
     Dates: start: 20140513, end: 20140513
  3. FLUDARABINE [Suspect]
     Active Substance: FLUDARABINE PHOSPHATE
     Dosage: C5D2
     Route: 042
     Dates: start: 20140610, end: 20140610
  4. CYCLOPHOSPHAMIDE. [Suspect]
     Active Substance: CYCLOPHOSPHAMIDE
     Dosage: C4D3
     Route: 042
     Dates: start: 20140514, end: 20140514
  5. CYCLOPHOSPHAMIDE. [Suspect]
     Active Substance: CYCLOPHOSPHAMIDE
     Dosage: C6D3
     Route: 042
     Dates: start: 20140716, end: 20140716
  6. BACTRIM [Concomitant]
     Active Substance: SULFAMETHOXAZOLE\TRIMETHOPRIM
     Route: 048
     Dates: start: 20140317, end: 20140318
  7. BACTRIM [Concomitant]
     Active Substance: SULFAMETHOXAZOLE\TRIMETHOPRIM
     Route: 048
     Dates: start: 20140518, end: 20140520
  8. BACTRIM [Concomitant]
     Active Substance: SULFAMETHOXAZOLE\TRIMETHOPRIM
     Route: 048
     Dates: start: 20140714, end: 20140715
  9. BACTRIM [Concomitant]
     Active Substance: SULFAMETHOXAZOLE\TRIMETHOPRIM
     Route: 048
     Dates: start: 20140901, end: 20140902
  10. BACTRIM [Concomitant]
     Active Substance: SULFAMETHOXAZOLE\TRIMETHOPRIM
     Route: 048
     Dates: start: 20140908, end: 20140909
  11. BACTRIM [Concomitant]
     Active Substance: SULFAMETHOXAZOLE\TRIMETHOPRIM
     Route: 048
     Dates: start: 20141027, end: 20141028
  12. METHYLPREDNISOLONE. [Concomitant]
     Active Substance: METHYLPREDNISOLONE
     Route: 042
     Dates: start: 20140512, end: 20140512
  13. FLUZOLE (TURKEY) [Concomitant]
     Route: 048
     Dates: start: 20140212, end: 20140214
  14. OMEPRAZOLE. [Concomitant]
     Active Substance: OMEPRAZOLE
     Route: 042
     Dates: start: 20140212, end: 20140219
  15. AMLODIPINE [Concomitant]
     Active Substance: AMLODIPINE BESYLATE
     Route: 048
     Dates: start: 20140219, end: 20140226
  16. PAROL (TURKEY) [Concomitant]
     Route: 048
     Dates: start: 20140312, end: 20140312
  17. EMETRIL [Concomitant]
     Route: 042
     Dates: start: 20140512, end: 20140514
  18. EMETRIL [Concomitant]
     Route: 042
     Dates: start: 20140609, end: 20140610
  19. OBINUTUZUMAB [Suspect]
     Active Substance: OBINUTUZUMAB
     Dosage: C1D15
     Route: 042
     Dates: start: 20140226, end: 20140226
  20. OBINUTUZUMAB [Suspect]
     Active Substance: OBINUTUZUMAB
     Dosage: C2D1
     Route: 042
     Dates: start: 20140312, end: 20140312
  21. OBINUTUZUMAB [Suspect]
     Active Substance: OBINUTUZUMAB
     Dosage: C4D1
     Route: 042
     Dates: start: 20140512, end: 20140512
  22. FLUDARABINE [Suspect]
     Active Substance: FLUDARABINE PHOSPHATE
     Dosage: C5D1
     Route: 042
     Dates: start: 20140609, end: 20140609
  23. CYCLOPHOSPHAMIDE. [Suspect]
     Active Substance: CYCLOPHOSPHAMIDE
     Dosage: C1D2
     Route: 042
     Dates: start: 20140213, end: 20140213
  24. CYCLOPHOSPHAMIDE. [Suspect]
     Active Substance: CYCLOPHOSPHAMIDE
     Dosage: C3D1
     Route: 042
     Dates: start: 20140410, end: 20140410
  25. CYCLOPHOSPHAMIDE. [Suspect]
     Active Substance: CYCLOPHOSPHAMIDE
     Dosage: C5D2
     Route: 042
     Dates: start: 20140610, end: 20140610
  26. BACTRIM [Concomitant]
     Active Substance: SULFAMETHOXAZOLE\TRIMETHOPRIM
     Route: 048
     Dates: start: 20140310, end: 20140311
  27. BACTRIM [Concomitant]
     Active Substance: SULFAMETHOXAZOLE\TRIMETHOPRIM
     Route: 048
     Dates: start: 20140324, end: 20140325
  28. BACTRIM [Concomitant]
     Active Substance: SULFAMETHOXAZOLE\TRIMETHOPRIM
     Route: 048
     Dates: start: 20140428, end: 20140429
  29. BACTRIM [Concomitant]
     Active Substance: SULFAMETHOXAZOLE\TRIMETHOPRIM
     Route: 048
     Dates: start: 20140922, end: 20140923
  30. BACTRIM [Concomitant]
     Active Substance: SULFAMETHOXAZOLE\TRIMETHOPRIM
     Route: 048
     Dates: start: 20141006, end: 20141007
  31. CAFFEINE/PARACETAMOL [Concomitant]
     Route: 048
     Dates: start: 20140512, end: 20140512
  32. ACICLOVIR [Concomitant]
     Active Substance: ACYCLOVIR
     Route: 048
     Dates: start: 20140213, end: 20140213
  33. OBINUTUZUMAB [Suspect]
     Active Substance: OBINUTUZUMAB
     Dosage: C3D1
     Route: 042
     Dates: start: 20140410, end: 20140410
  34. FLUDARABINE [Suspect]
     Active Substance: FLUDARABINE PHOSPHATE
     Dosage: C2D1
     Route: 042
     Dates: start: 20140312, end: 20140312
  35. CYCLOPHOSPHAMIDE. [Suspect]
     Active Substance: CYCLOPHOSPHAMIDE
     Dosage: C2D2
     Route: 042
     Dates: start: 20140313, end: 20140313
  36. CYCLOPHOSPHAMIDE. [Suspect]
     Active Substance: CYCLOPHOSPHAMIDE
     Dosage: C6D2
     Route: 042
     Dates: start: 20140715, end: 20140715
  37. BACTRIM [Concomitant]
     Active Substance: SULFAMETHOXAZOLE\TRIMETHOPRIM
     Indication: PROPHYLAXIS
     Route: 048
     Dates: start: 20140212, end: 20140214
  38. BACTRIM [Concomitant]
     Active Substance: SULFAMETHOXAZOLE\TRIMETHOPRIM
     Route: 048
     Dates: start: 20140414, end: 20140415
  39. BACTRIM [Concomitant]
     Active Substance: SULFAMETHOXAZOLE\TRIMETHOPRIM
     Route: 048
     Dates: start: 20141020, end: 20141021
  40. PULMICORT TURBUHALER [Concomitant]
     Active Substance: BUDESONIDE
     Route: 042
     Dates: start: 20140219, end: 20140219
  41. METHYLPREDNISOLONE. [Concomitant]
     Active Substance: METHYLPREDNISOLONE
     Route: 042
     Dates: start: 20140219, end: 20140219
  42. PREDNOL (PREDNISOLONE) [Concomitant]
     Indication: PROPHYLAXIS
     Route: 042
     Dates: start: 20140714, end: 20140714
  43. PREDNOL (PREDNISOLONE) [Concomitant]
     Route: 042
     Dates: start: 20140609, end: 20140609
  44. AKLOVIR [Concomitant]
     Route: 065
     Dates: start: 20140214
  45. TAZOPERAN [Concomitant]
     Dosage: 4.5 GR
     Route: 042
     Dates: start: 20140822, end: 20140828
  46. FLUDARABINE [Suspect]
     Active Substance: FLUDARABINE PHOSPHATE
     Dosage: C1D1
     Route: 042
     Dates: start: 20140213, end: 20140213
  47. FLUDARABINE [Suspect]
     Active Substance: FLUDARABINE PHOSPHATE
     Dosage: C2D2
     Route: 042
     Dates: start: 20140313, end: 20140313
  48. FLUDARABINE [Suspect]
     Active Substance: FLUDARABINE PHOSPHATE
     Dosage: C3D2
     Route: 042
     Dates: start: 20140411, end: 20140411
  49. FLUDARABINE [Suspect]
     Active Substance: FLUDARABINE PHOSPHATE
     Dosage: C4D3
     Route: 042
     Dates: start: 20140514, end: 20140514
  50. CYCLOPHOSPHAMIDE. [Suspect]
     Active Substance: CYCLOPHOSPHAMIDE
     Dosage: C4D1
     Route: 042
     Dates: start: 20140512, end: 20140512
  51. CYCLOPHOSPHAMIDE. [Suspect]
     Active Substance: CYCLOPHOSPHAMIDE
     Dosage: C5D3
     Route: 042
     Dates: start: 20140611, end: 20140611
  52. BACTRIM [Concomitant]
     Active Substance: SULFAMETHOXAZOLE\TRIMETHOPRIM
     Route: 048
     Dates: start: 20140219, end: 20140224
  53. BACTRIM [Concomitant]
     Active Substance: SULFAMETHOXAZOLE\TRIMETHOPRIM
     Route: 048
     Dates: start: 20140331, end: 20140401
  54. BACTRIM [Concomitant]
     Active Substance: SULFAMETHOXAZOLE\TRIMETHOPRIM
     Route: 048
     Dates: start: 20140505, end: 20140506
  55. BACTRIM [Concomitant]
     Active Substance: SULFAMETHOXAZOLE\TRIMETHOPRIM
     Route: 048
     Dates: start: 20140526, end: 20140527
  56. BACTRIM [Concomitant]
     Active Substance: SULFAMETHOXAZOLE\TRIMETHOPRIM
     Route: 048
     Dates: start: 20140602, end: 20140603
  57. BACTRIM [Concomitant]
     Active Substance: SULFAMETHOXAZOLE\TRIMETHOPRIM
     Route: 048
     Dates: start: 20140728, end: 20140729
  58. BACTRIM [Concomitant]
     Active Substance: SULFAMETHOXAZOLE\TRIMETHOPRIM
     Route: 048
     Dates: start: 20140804, end: 20140805
  59. BACTRIM [Concomitant]
     Active Substance: SULFAMETHOXAZOLE\TRIMETHOPRIM
     Route: 048
     Dates: start: 20140818, end: 20140819
  60. PULMICORT TURBUHALER [Concomitant]
     Active Substance: BUDESONIDE
     Route: 042
     Dates: start: 20140211, end: 20140214
  61. METHYLPREDNISOLONE. [Concomitant]
     Active Substance: METHYLPREDNISOLONE
     Route: 042
     Dates: start: 20140212, end: 20140213
  62. METHYLPREDNISOLONE. [Concomitant]
     Active Substance: METHYLPREDNISOLONE
     Route: 042
     Dates: start: 20140312, end: 20140313
  63. ASIVIRAL [Concomitant]
     Active Substance: ACYCLOVIR
     Route: 048
     Dates: start: 20140314, end: 20140314
  64. ASIVIRAL [Concomitant]
     Active Substance: ACYCLOVIR
     Route: 048
     Dates: start: 20140821, end: 20140821
  65. CAFFEINE/PARACETAMOL [Concomitant]
     Route: 048
     Dates: start: 20140226, end: 20140226
  66. METOPRIM FORT [Concomitant]
     Route: 048
     Dates: start: 20140825, end: 20140826
  67. AKLOVIR [Concomitant]
     Route: 065
     Dates: start: 20140213, end: 20140213
  68. FLUDARABINE [Suspect]
     Active Substance: FLUDARABINE PHOSPHATE
     Dosage: C3D1
     Route: 042
     Dates: start: 20140410, end: 20140410
  69. FLUDARABINE [Suspect]
     Active Substance: FLUDARABINE PHOSPHATE
     Dosage: C4D1
     Route: 042
     Dates: start: 20140512, end: 20140512
  70. URIKOLIZ [Concomitant]
     Active Substance: ALLOPURINOL
     Route: 048
     Dates: start: 20140207, end: 20140410
  71. BACTRIM [Concomitant]
     Active Substance: SULFAMETHOXAZOLE\TRIMETHOPRIM
     Route: 048
     Dates: start: 20140512, end: 20140513
  72. METHYLPREDNISOLONE. [Concomitant]
     Active Substance: METHYLPREDNISOLONE
     Route: 042
     Dates: start: 20140226, end: 20140226
  73. TRIMOKS FORT [Concomitant]
     Route: 048
     Dates: start: 20140225, end: 20140226
  74. CAFFEINE/PARACETAMOL [Concomitant]
     Route: 048
     Dates: start: 20140212, end: 20140212
  75. PAROL (TURKEY) [Concomitant]
     Route: 048
     Dates: start: 20140821, end: 20140821
  76. METOPRIM FORT [Concomitant]
     Indication: PROPHYLAXIS
     Route: 048
     Dates: start: 20140408, end: 20140409
  77. ZOFER [Concomitant]
     Route: 042
     Dates: start: 20140412, end: 20140412
  78. OBINUTUZUMAB [Suspect]
     Active Substance: OBINUTUZUMAB
     Dosage: C1D2
     Route: 042
     Dates: start: 20140213, end: 20140213
  79. OBINUTUZUMAB [Suspect]
     Active Substance: OBINUTUZUMAB
     Dosage: C5D1
     Route: 042
     Dates: start: 20140609, end: 20140609
  80. OBINUTUZUMAB [Suspect]
     Active Substance: OBINUTUZUMAB
     Dosage: C6D1
     Route: 042
     Dates: start: 20140714, end: 20140714
  81. FLUDARABINE [Suspect]
     Active Substance: FLUDARABINE PHOSPHATE
     Dosage: C2D3
     Route: 042
     Dates: start: 20140314, end: 20140314
  82. FLUDARABINE [Suspect]
     Active Substance: FLUDARABINE PHOSPHATE
     Dosage: C3D3
     Route: 042
     Dates: start: 20140412, end: 20140412
  83. FLUDARABINE [Suspect]
     Active Substance: FLUDARABINE PHOSPHATE
     Dosage: C6D1
     Route: 042
     Dates: start: 20140714, end: 20140714
  84. CYCLOPHOSPHAMIDE. [Suspect]
     Active Substance: CYCLOPHOSPHAMIDE
     Indication: CHRONIC LYMPHOCYTIC LEUKAEMIA
     Dosage: C1D1?LAST DOSE PRIOR TO THROMBOCYTOPENIA BECOMING SERIOUS: 11/JUN/2014.
     Route: 042
     Dates: start: 20140212, end: 20140212
  85. CYCLOPHOSPHAMIDE. [Suspect]
     Active Substance: CYCLOPHOSPHAMIDE
     Dosage: C5D1
     Route: 042
     Dates: start: 20140609, end: 20140609
  86. CYCLOPHOSPHAMIDE. [Suspect]
     Active Substance: CYCLOPHOSPHAMIDE
     Dosage: C6D1
     Route: 042
     Dates: start: 20140714, end: 20140714
  87. BACTRIM [Concomitant]
     Active Substance: SULFAMETHOXAZOLE\TRIMETHOPRIM
     Route: 048
     Dates: start: 20140407, end: 20140408
  88. BACTRIM [Concomitant]
     Active Substance: SULFAMETHOXAZOLE\TRIMETHOPRIM
     Route: 048
     Dates: start: 20141013, end: 20141014
  89. ZOLAX (TURKEY) [Concomitant]
     Route: 048
     Dates: start: 20140219
  90. OMEPRAZOLE. [Concomitant]
     Active Substance: OMEPRAZOLE
     Route: 042
     Dates: start: 20140226, end: 20140226
  91. PAROL (TURKEY) [Concomitant]
     Route: 048
     Dates: start: 20140609, end: 20140609
  92. DEGASTROL [Concomitant]
     Route: 048
     Dates: start: 20140611, end: 20140611
  93. DEGASTROL [Concomitant]
     Route: 048
     Dates: start: 20140714, end: 20140719
  94. DEGASTROL [Concomitant]
     Route: 048
     Dates: start: 20140820, end: 20140821
  95. FLUDARABINE [Suspect]
     Active Substance: FLUDARABINE PHOSPHATE
     Indication: CHRONIC LYMPHOCYTIC LEUKAEMIA
     Dosage: C1D1?LAST DOSE PRIOR TO THROMBOCYTOPENIA BECOMING SERIOUS: 11/JUN/2014
     Route: 042
     Dates: start: 20140212, end: 20140212
  96. FLUDARABINE [Suspect]
     Active Substance: FLUDARABINE PHOSPHATE
     Dosage: C1D3
     Route: 042
     Dates: start: 20140214, end: 20140214
  97. FLUDARABINE [Suspect]
     Active Substance: FLUDARABINE PHOSPHATE
     Dosage: C5D3
     Route: 042
     Dates: start: 20140611, end: 20140611
  98. FLUDARABINE [Suspect]
     Active Substance: FLUDARABINE PHOSPHATE
     Dosage: C6D2
     Route: 042
     Dates: start: 20140715, end: 20140715
  99. CYCLOPHOSPHAMIDE. [Suspect]
     Active Substance: CYCLOPHOSPHAMIDE
     Dosage: C2D1
     Route: 042
     Dates: start: 20140312, end: 20140312
  100. CYCLOPHOSPHAMIDE. [Suspect]
     Active Substance: CYCLOPHOSPHAMIDE
     Dosage: C3D3
     Route: 042
     Dates: start: 20140412, end: 20140412
  101. URIKOLIZ [Concomitant]
     Active Substance: ALLOPURINOL
     Route: 048
     Dates: start: 20140714
  102. BACTRIM [Concomitant]
     Active Substance: SULFAMETHOXAZOLE\TRIMETHOPRIM
     Route: 048
     Dates: start: 20140303, end: 20140304
  103. BACTRIM [Concomitant]
     Active Substance: SULFAMETHOXAZOLE\TRIMETHOPRIM
     Route: 048
     Dates: start: 20140421, end: 20140422
  104. BACTRIM [Concomitant]
     Active Substance: SULFAMETHOXAZOLE\TRIMETHOPRIM
     Route: 048
     Dates: start: 20140811, end: 20140812
  105. BACTRIM [Concomitant]
     Active Substance: SULFAMETHOXAZOLE\TRIMETHOPRIM
     Route: 048
     Dates: start: 20141103, end: 20141104
  106. ASIVIRAL [Concomitant]
     Active Substance: ACYCLOVIR
     Route: 048
     Dates: start: 20140714, end: 20140714
  107. ACICLOVIR [Concomitant]
     Active Substance: ACYCLOVIR
     Route: 048
     Dates: start: 20140214
  108. TAZOPERAN [Concomitant]
     Dosage: 4.5 GR
     Route: 042
     Dates: start: 20140820, end: 20140821
  109. CIPRO [Concomitant]
     Active Substance: CIPROFLOXACIN HYDROCHLORIDE
     Indication: PROPHYLAXIS
     Route: 048
     Dates: start: 20140729, end: 20140904
  110. AMOKLAVIN [Concomitant]
     Indication: PROPHYLAXIS
     Route: 065
     Dates: start: 20140829, end: 20140904
  111. OBINUTUZUMAB [Suspect]
     Active Substance: OBINUTUZUMAB
     Indication: CHRONIC LYMPHOCYTIC LEUKAEMIA
     Dosage: C1D1?LAST DOSE PRIOR TO THROMBOCYTOPENIA BECOMING SERIOUS: 09/JUN/2014
     Route: 042
     Dates: start: 20140212, end: 20140212
  112. FLUDARABINE [Suspect]
     Active Substance: FLUDARABINE PHOSPHATE
     Dosage: C6D3
     Route: 042
     Dates: start: 20140716, end: 20140716
  113. CYCLOPHOSPHAMIDE. [Suspect]
     Active Substance: CYCLOPHOSPHAMIDE
     Dosage: C1D3
     Route: 042
     Dates: start: 20140214, end: 20140214
  114. CYCLOPHOSPHAMIDE. [Suspect]
     Active Substance: CYCLOPHOSPHAMIDE
     Dosage: C2D3
     Route: 042
     Dates: start: 20140314, end: 20140314
  115. CYCLOPHOSPHAMIDE. [Suspect]
     Active Substance: CYCLOPHOSPHAMIDE
     Dosage: C3D2
     Route: 042
     Dates: start: 20140411, end: 20140411
  116. CYCLOPHOSPHAMIDE. [Suspect]
     Active Substance: CYCLOPHOSPHAMIDE
     Dosage: C4D2
     Route: 042
     Dates: start: 20140513, end: 20140513
  117. BACTRIM [Concomitant]
     Active Substance: SULFAMETHOXAZOLE\TRIMETHOPRIM
     Route: 048
     Dates: start: 20140609, end: 20140610
  118. BACTRIM [Concomitant]
     Active Substance: SULFAMETHOXAZOLE\TRIMETHOPRIM
     Route: 048
     Dates: start: 20140616, end: 20140617
  119. BACTRIM [Concomitant]
     Active Substance: SULFAMETHOXAZOLE\TRIMETHOPRIM
     Route: 048
     Dates: start: 20140623, end: 20140624
  120. BACTRIM [Concomitant]
     Active Substance: SULFAMETHOXAZOLE\TRIMETHOPRIM
     Route: 048
     Dates: start: 20140630, end: 20140701
  121. BACTRIM [Concomitant]
     Active Substance: SULFAMETHOXAZOLE\TRIMETHOPRIM
     Route: 048
     Dates: start: 20140707, end: 20140708
  122. BACTRIM [Concomitant]
     Active Substance: SULFAMETHOXAZOLE\TRIMETHOPRIM
     Route: 048
     Dates: start: 20140721, end: 20140722
  123. BACTRIM [Concomitant]
     Active Substance: SULFAMETHOXAZOLE\TRIMETHOPRIM
     Route: 048
     Dates: start: 20140915, end: 20140916
  124. ASIVIRAL [Concomitant]
     Active Substance: ACYCLOVIR
     Route: 048
     Dates: start: 20140212, end: 20140212
  125. CAFFEINE/PARACETAMOL [Concomitant]
     Route: 048
     Dates: start: 20140219, end: 20140219
  126. METOPRIM FORT [Concomitant]
     Route: 048
     Dates: start: 20140824, end: 20140824
  127. DEGASTROL [Concomitant]
     Indication: PROPHYLAXIS
     Route: 048
     Dates: start: 20140512, end: 20140512
  128. KYTRIL [Concomitant]
     Active Substance: GRANISETRON HYDROCHLORIDE
     Indication: PROPHYLAXIS
     Dosage: SINGLE DOSE
     Route: 042
     Dates: start: 20140714, end: 20140714
  129. OMEPROL [Concomitant]
     Active Substance: OMEPRAZOLE
     Indication: PROPHYLAXIS
     Route: 048
     Dates: start: 20140610, end: 20140610

REACTIONS (3)
  - Febrile neutropenia [Recovered/Resolved]
  - Neutropenia [Recovered/Resolved]
  - Thrombocytopenia [Not Recovered/Not Resolved]

NARRATIVE: CASE EVENT DATE: 20140312
